FAERS Safety Report 6796275-4 (Version None)
Quarter: 2010Q2

REPORT INFORMATION
  Report Type: 
  Country: None (occurrence: None)
  Receive Date: 20100625
  Receipt Date: 20100521
  Transmission Date: 20101027
  Serious: Yes (Other)
  Sender: FDA-Public Use
  Company Number: US-MERCK-1005USA03921

PATIENT
  Age: 5 Year
  Sex: Male

DRUGS (1)
  1. SINGULAIR [Suspect]
     Indication: ASTHMA
     Route: 048

REACTIONS (11)
  - ABDOMINAL PAIN UPPER [None]
  - ANGER [None]
  - CHRONIC SINUSITIS [None]
  - DEPRESSED MOOD [None]
  - DEPRESSION [None]
  - EMOTIONAL DISORDER [None]
  - MENTAL IMPAIRMENT [None]
  - NEGATIVE THOUGHTS [None]
  - PERSONALITY CHANGE [None]
  - SELF ESTEEM DECREASED [None]
  - SUICIDAL IDEATION [None]
